FAERS Safety Report 10458648 (Version 2)
Quarter: 2014Q3

REPORT INFORMATION
  Report Type: Report from Study
  Country: GB (occurrence: GB)
  Receive Date: 20140917
  Receipt Date: 20140917
  Transmission Date: 20150326
  Serious: Yes (Hospitalization, Other)
  Sender: FDA-Public Use
  Company Number: GB-TEVA-389733ISR

PATIENT
  Age: 51 Year
  Sex: Male
  Weight: 83 kg

DRUGS (22)
  1. OXALIPLATIN. [Suspect]
     Active Substance: OXALIPLATIN
     Indication: COLORECTAL CANCER METASTATIC
     Dosage: 170 MG, EVERY CYCLE 28 DAYS
     Route: 042
     Dates: start: 20121219, end: 20130130
  2. OXALIPLATIN. [Suspect]
     Active Substance: OXALIPLATIN
     Dosage: EVERY CYCLE 28 DAYS
     Route: 042
     Dates: start: 20130220
  3. 5 FU [Suspect]
     Active Substance: FLUOROURACIL
     Route: 042
     Dates: start: 20130220
  4. 5 FU [Suspect]
     Active Substance: FLUOROURACIL
     Dosage: EVERY CYCLE 28 DAYS
     Route: 042
     Dates: start: 20121219, end: 20130130
  5. 5 FU [Suspect]
     Active Substance: FLUOROURACIL
     Indication: COLORECTAL CANCER METASTATIC
     Dosage: EVERY CYCLE 28 DAYS
     Route: 040
     Dates: start: 20121219, end: 20130130
  6. ACICLOVIR [Concomitant]
     Active Substance: ACYCLOVIR
  7. CYCLIZINE [Concomitant]
     Active Substance: CYCLIZINE
  8. ORAMORPH SR SUSTAINED RELEASE [Concomitant]
     Active Substance: MORPHINE SULFATE
     Dates: start: 20130102
  9. TIVOZANIB [Suspect]
     Active Substance: TIVOZANIB
     Indication: COLORECTAL CANCER METASTATIC
     Dosage: 1.5 MILLIGRAM DAILY; 1.5 MG, UID/QD FOR 21 DAYS
     Route: 048
     Dates: start: 20121219, end: 20130129
  10. PARACETAMOL [Concomitant]
     Active Substance: ACETAMINOPHEN
  11. LEUCOVORIN CALCIUM. [Suspect]
     Active Substance: LEUCOVORIN CALCIUM
     Dosage: EVERY CYCLE 28 DAYS
     Route: 042
     Dates: start: 20130220
  12. 5 FU [Suspect]
     Active Substance: FLUOROURACIL
     Route: 040
     Dates: start: 20130220
  13. TINZAPARIN [Concomitant]
     Active Substance: TINZAPARIN
  14. MUPIROCIN. [Concomitant]
     Active Substance: MUPIROCIN
  15. BACTROBAN [Concomitant]
     Active Substance: MUPIROCIN\MUPIROCIN CALCIUM
  16. MEROPENEM. [Concomitant]
     Active Substance: MEROPENEM
  17. LEUCOVORIN CALCIUM. [Suspect]
     Active Substance: LEUCOVORIN CALCIUM
     Indication: COLORECTAL CANCER METASTATIC
     Dosage: EVERY CYCLE 28 DAYS
     Route: 042
     Dates: start: 20121219, end: 20130130
  18. OCTENIMAN (ISOPROPANOL, OCTENIDINEHYDROCHLORIDE, PROPANOL) [Concomitant]
  19. TAZOCIN [Concomitant]
     Active Substance: PIPERACILLIN SODIUM\TAZOBACTAM SODIUM
  20. VANCOMYCIN [Concomitant]
     Active Substance: VANCOMYCIN
  21. FLUCONAZOLE. [Concomitant]
     Active Substance: FLUCONAZOLE
  22. DIFFLAM [Concomitant]
     Active Substance: BENZYDAMINE HYDROCHLORIDE

REACTIONS (4)
  - Staphylococcal infection [Recovering/Resolving]
  - Febrile neutropenia [Recovered/Resolved]
  - Pulmonary embolism [Recovering/Resolving]
  - Tachycardia [Recovering/Resolving]

NARRATIVE: CASE EVENT DATE: 20130128
